FAERS Safety Report 9423866 (Version 2)
Quarter: 2013Q3

REPORT INFORMATION
  Report Type: Report from Study
  Country: GB (occurrence: GB)
  Receive Date: 20130729
  Receipt Date: 20130806
  Transmission Date: 20140515
  Serious: Yes (Death)
  Sender: FDA-Public Use
  Company Number: GB-AMGEN-GBRCT2013052634

PATIENT
  Age: 72 Year
  Sex: Female

DRUGS (3)
  1. ETANERCEPT [Suspect]
     Indication: RHEUMATOID ARTHRITIS
     Dosage: 25 MG, 2 TIMES/WK
     Route: 065
     Dates: start: 20081202, end: 20090305
  2. METHOTREXATE [Concomitant]
     Dosage: UNK
  3. CYCLOPHOSPHAMIDE [Concomitant]
     Dosage: UNK

REACTIONS (3)
  - Squamous cell carcinoma of the vagina [Fatal]
  - Chronic obstructive pulmonary disease [Fatal]
  - Myocardial ischaemia [Fatal]
